FAERS Safety Report 21674753 (Version 6)
Quarter: 2023Q2

REPORT INFORMATION
  Report Type: Report from Study
  Country: BE (occurrence: None)
  Receive Date: 20221202
  Receipt Date: 20230630
  Transmission Date: 20230721
  Serious: Yes (Hospitalization)
  Sender: FDA-Public Use
  Company Number: BE-ROCHE-3227469

PATIENT
  Age: 67 Year
  Sex: Female
  Weight: 67 kg

DRUGS (16)
  1. PLACEBO [Suspect]
     Active Substance: UNSPECIFIED INGREDIENT
     Indication: Idiopathic pulmonary fibrosis
     Dosage: ON 15/NOV/2022, RECEIVED THE MOST RECENT DOSE PRIOR TO SAE
     Route: 042
     Dates: start: 20220321
  2. PIRFENIDONE [Suspect]
     Active Substance: PIRFENIDONE
     Indication: Idiopathic pulmonary fibrosis
     Route: 048
     Dates: start: 20220520
  3. NINTEDANIB [Suspect]
     Active Substance: NINTEDANIB
     Indication: Idiopathic pulmonary fibrosis
     Dosage: ON 24/OCT/2022, RECEIVED THE MOST RECENT DOSE 100MG PRIOR TO AE/SAE
     Route: 048
     Dates: start: 20210423
  4. ASPIRIN [Concomitant]
     Active Substance: ASPIRIN
     Indication: Prophylaxis
     Route: 048
     Dates: start: 202106
  5. CALCIUM CARBONATE [Concomitant]
     Active Substance: CALCIUM CARBONATE
     Indication: Prophylaxis
     Route: 048
     Dates: start: 202109
  6. D VITAL FORTE [Concomitant]
     Indication: Prophylaxis
     Route: 048
     Dates: start: 2005
  7. ZOLPIDEM [Concomitant]
     Active Substance: ZOLPIDEM TARTRATE
     Indication: Prophylaxis
     Route: 048
     Dates: start: 2005
  8. PRAVASTATIN [Concomitant]
     Active Substance: PRAVASTATIN
     Indication: Prophylaxis
     Route: 048
     Dates: start: 202110
  9. MELATONIN [Concomitant]
     Active Substance: MELATONIN
     Indication: Prophylaxis
     Route: 048
     Dates: start: 202112
  10. CETIRIZINE HYDROCHLORIDE [Concomitant]
     Active Substance: CETIRIZINE HYDROCHLORIDE
     Indication: Prophylaxis
     Route: 048
     Dates: start: 202201
  11. VENLAFAXINE [Concomitant]
     Active Substance: VENLAFAXINE HYDROCHLORIDE
     Indication: Prophylaxis
     Route: 048
     Dates: start: 2005
  12. L-GLUTAMINE [Concomitant]
     Indication: Prophylaxis
     Route: 048
     Dates: start: 202203
  13. TRISYN [Concomitant]
     Indication: Prophylaxis
     Route: 048
     Dates: start: 202203
  14. ANTISTAX [Concomitant]
     Indication: Prophylaxis
     Route: 048
     Dates: start: 2010
  15. PREVNAR 13 [Concomitant]
     Active Substance: PNEUMOCOCCAL 13-VALENT CONJUGATE VACCINE
     Route: 030
  16. PNEUMOVAX 23 [Concomitant]
     Active Substance: PNEUMOCOCCAL VACCINE, POLYVALENT 23
     Route: 030

REACTIONS (1)
  - Pneumonia [Recovered/Resolved]

NARRATIVE: CASE EVENT DATE: 20221122
